FAERS Safety Report 10151652 (Version 1)
Quarter: 2014Q2

REPORT INFORMATION
  Report Type: Spontaneous
  Country: IL (occurrence: IL)
  Receive Date: 20140505
  Receipt Date: 20140505
  Transmission Date: 20141212
  Serious: Yes (Hospitalization, Other)
  Sender: FDA-Public Use
  Company Number: IL-ACCORD-023458

PATIENT
  Age: 54 Year
  Sex: Male

DRUGS (1)
  1. TOPIRAMATE [Suspect]
     Indication: WEIGHT DECREASED
     Route: 048

REACTIONS (2)
  - Uveitis [Recovered/Resolved]
  - Angle closure glaucoma [Recovered/Resolved]
